FAERS Safety Report 12917417 (Version 1)
Quarter: 2016Q4

REPORT INFORMATION
  Report Type: Report from Study
  Country: US (occurrence: US)
  Receive Date: 20161107
  Receipt Date: 20161107
  Transmission Date: 20170207
  Serious: Yes (Other)
  Sender: FDA-Public Use
  Company Number: US-AMGEN-USASL2016152787

PATIENT
  Age: 12 Year
  Sex: Female

DRUGS (1)
  1. ENBREL [Suspect]
     Active Substance: ETANERCEPT
     Indication: RHEUMATOID ARTHRITIS
     Dosage: 1.6 ML, QWK
     Route: 065

REACTIONS (7)
  - Fall [Unknown]
  - Off label use [Unknown]
  - Fractured coccyx [Unknown]
  - Contusion [Not Recovered/Not Resolved]
  - Temporomandibular joint syndrome [Recovering/Resolving]
  - Pain [Unknown]
  - Decreased activity [Unknown]

NARRATIVE: CASE EVENT DATE: 2016
